FAERS Safety Report 6888162-8 (Version None)
Quarter: 2010Q3

REPORT INFORMATION
  Report Type: 
  Country: None (occurrence: None)
  Receive Date: 20100708
  Receipt Date: 20091207
  Transmission Date: 20110219
  Serious: Yes (Other)
  Sender: FDA-Public Use
  Company Number: 2009287302

PATIENT
  Age: 64 Year
  Sex: Female

DRUGS (4)
  1. CHANTIX [Suspect]
     Indication: SMOKING CESSATION THERAPY
     Dates: start: 20070101
  2. DARVOCET [Concomitant]
  3. ULTRAM (TRAMADOL HYDROCHLORIDE0 [Concomitant]
  4. IBUPROFEN [Concomitant]

REACTIONS (1)
  - HYPERTENSION [None]
